FAERS Safety Report 14151323 (Version 2)
Quarter: 2017Q4

REPORT INFORMATION
  Report Type: Report from Study
  Country: US (occurrence: US)
  Receive Date: 20171102
  Receipt Date: 20171113
  Transmission Date: 20180321
  Serious: Yes (Other)
  Sender: FDA-Public Use
  Company Number: US-BAUSCH-BL-2017-030472

PATIENT
  Age: 75 Year
  Sex: Female

DRUGS (22)
  1. SPIRONOLACTONE. [Concomitant]
     Active Substance: SPIRONOLACTONE
     Indication: LIVER DISORDER
     Dosage: IN THE MORNING
     Dates: start: 2015
  2. GABAPENTIN. [Concomitant]
     Active Substance: GABAPENTIN
     Indication: LIVER DISORDER
     Dates: start: 2015
  3. FERROUS SULFATE. [Concomitant]
     Active Substance: FERROUS SULFATE
     Indication: BLOOD IRON DECREASED
     Dates: start: 2015
  4. FUROSEMIDE. [Concomitant]
     Active Substance: FUROSEMIDE
     Indication: LIVER DISORDER
     Dates: start: 2015
  5. FOLIC ACID. [Concomitant]
     Active Substance: FOLIC ACID
     Indication: LIVER DISORDER
     Dates: start: 2015
  6. NADOLOL. [Concomitant]
     Active Substance: NADOLOL
     Indication: LIVER DISORDER
     Dates: start: 2015
  7. VITAMIN D2 [Concomitant]
     Active Substance: ERGOCALCIFEROL
     Indication: RENAL DISORDER
  8. RANITIDINE. [Concomitant]
     Active Substance: RANITIDINE
     Indication: LIVER DISORDER
     Dates: start: 2015
  9. SPIRONOLACTONE. [Concomitant]
     Active Substance: SPIRONOLACTONE
     Indication: RENAL DISORDER
     Dosage: IN THE MORNING
     Dates: start: 2015
  10. NADOLOL. [Concomitant]
     Active Substance: NADOLOL
     Indication: RENAL DISORDER
  11. PRESERVISION AREDS 2 FORMULA EYE VITAMIN [Concomitant]
     Indication: MACULAR DEGENERATION
     Dates: start: 2015
  12. CALCIUM + D [Concomitant]
     Active Substance: CALCIUM\VITAMIN D
     Indication: PRODUCT USED FOR UNKNOWN INDICATION
     Dates: start: 2015
  13. FOLIC ACID. [Concomitant]
     Active Substance: FOLIC ACID
     Indication: RENAL DISORDER
  14. SUCRALFATE. [Concomitant]
     Active Substance: SUCRALFATE
     Indication: LIVER DISORDER
     Dates: start: 2015
  15. LEVOTHYROXINE. [Concomitant]
     Active Substance: LEVOTHYROXINE
     Indication: THYROID DISORDER
     Dates: start: 2007
  16. XIFAXAN [Suspect]
     Active Substance: RIFAXIMIN
     Indication: HEPATIC CIRRHOSIS
     Route: 048
     Dates: start: 201502
  17. GABAPENTIN. [Concomitant]
     Active Substance: GABAPENTIN
     Indication: RENAL DISORDER
  18. SUCRALFATE. [Concomitant]
     Active Substance: SUCRALFATE
     Indication: RENAL DISORDER
  19. OSTEOPLEX [Concomitant]
     Indication: ARTHRITIS
     Dates: start: 2002
  20. FUROSEMIDE. [Concomitant]
     Active Substance: FUROSEMIDE
     Indication: RENAL DISORDER
  21. VITAMIN D2 [Concomitant]
     Active Substance: ERGOCALCIFEROL
     Indication: LIVER DISORDER
     Dates: start: 2015
  22. RANITIDINE. [Concomitant]
     Active Substance: RANITIDINE
     Indication: RENAL DISORDER

REACTIONS (1)
  - Renal failure [Not Recovered/Not Resolved]

NARRATIVE: CASE EVENT DATE: 201710
